FAERS Safety Report 21730396 (Version 1)
Quarter: 2022Q4

REPORT INFORMATION
  Report Type: Spontaneous
  Country: DE (occurrence: DE)
  Receive Date: 20221214
  Receipt Date: 20221214
  Transmission Date: 20230112
  Serious: Yes (Other)
  Sender: FDA-Public Use
  Company Number: None

PATIENT
  Age: 69 Year
  Sex: Female

DRUGS (5)
  1. RAMIPRIL [Suspect]
     Active Substance: RAMIPRIL
     Indication: Hypertension
     Dosage: 2.5 MILLIGRAM, QD
  2. LERCANIDIPINE HYDROCHLORIDE [Suspect]
     Active Substance: LERCANIDIPINE HYDROCHLORIDE
     Indication: Hypertension
     Dosage: 20 MILLIGRAM, QD
  3. TORSEMIDE [Suspect]
     Active Substance: TORSEMIDE
     Indication: Hypertension
     Dosage: 40 MILLIGRAM, UNK
  4. HYGROTON [Concomitant]
     Active Substance: CHLORTHALIDONE
     Indication: Secondary hypertension
     Dosage: 50 MILLIGRAM
  5. TORSEMIDE [Suspect]
     Active Substance: TORSEMIDE
     Indication: Hypertension
     Dosage: 20 MILLIGRAM, QD

REACTIONS (3)
  - Hypertension [Recovering/Resolving]
  - Hypertensive crisis [Recovering/Resolving]
  - Contraindicated product administered [Recovering/Resolving]
